FAERS Safety Report 7367143-4 (Version None)
Quarter: 2011Q1

REPORT INFORMATION
  Report Type: 
  Country: None (occurrence: None)
  Receive Date: 20110310
  Receipt Date: 20110224
  Transmission Date: 20110831
  Serious: Yes (Hospitalization, Other)
  Sender: FDA-Public Use
  Company Number: 028669

PATIENT
  Age: 12 Year
  Sex: Female
  Weight: 57 kg

DRUGS (2)
  1. ATOMOXETINE (ATOMOXETINE) [Suspect]
     Indication: ATTENTION DEFICIT/HYPERACTIVITY DISORDER
     Dosage: (ORAL)
     Route: 048
     Dates: start: 20080407
  2. EQUASYM (EQUASYM XL) [Suspect]
     Indication: ATTENTION DEFICIT/HYPERACTIVITY DISORDER
     Dosage: (ORAL)
     Route: 048
     Dates: start: 20081111

REACTIONS (1)
  - CONVULSION [None]
